FAERS Safety Report 16556592 (Version 3)
Quarter: 2019Q4

REPORT INFORMATION
  Report Type: Spontaneous
  Country: DK (occurrence: DK)
  Receive Date: 20190711
  Receipt Date: 20191106
  Transmission Date: 20200122
  Serious: Yes (Life-Threatening, Hospitalization, Disabling)
  Sender: FDA-Public Use
  Company Number: DK-UCBSA-2019028509

PATIENT
  Age: 49 Year
  Sex: Male
  Weight: 80 kg

DRUGS (2)
  1. LANSOPRAZOL MEDICAL VALLEY [Concomitant]
     Indication: DYSPEPSIA
     Dosage: 30 MILLIGRAM, ONCE DAILY (QD)
     Route: 048
     Dates: start: 20160601
  2. CIMZIA [Suspect]
     Active Substance: CERTOLIZUMAB PEGOL
     Indication: RHEUMATOID ARTHRITIS
     Dosage: 200 MILLIGRAM, EV 2 WEEKS(QOW)
     Route: 058
     Dates: start: 20161003, end: 20190206

REACTIONS (8)
  - Paraesthesia [Not Recovered/Not Resolved]
  - Pyrexia [Unknown]
  - Brain abscess [Not Recovered/Not Resolved]
  - C-reactive protein increased [Unknown]
  - Muscular weakness [Not Recovered/Not Resolved]
  - Leukocytosis [Unknown]
  - Seizure [Unknown]
  - Headache [Not Recovered/Not Resolved]

NARRATIVE: CASE EVENT DATE: 20190206
